FAERS Safety Report 18855745 (Version 1)
Quarter: 2021Q1

REPORT INFORMATION
  Report Type: Spontaneous
  Country: US (occurrence: US)
  Receive Date: 20210205
  Receipt Date: 20210205
  Transmission Date: 20210420
  Serious: No
  Sender: FDA-Public Use
  Company Number: US-NEURELIS, INC.-2020NEU000214

PATIENT

DRUGS (1)
  1. VALTOCO [Suspect]
     Active Substance: DIAZEPAM
     Indication: SEIZURE
     Dosage: 10 MG, UNK
     Route: 045

REACTIONS (5)
  - Product expiration date issue [Unknown]
  - Erythema [Unknown]
  - Drug ineffective [Unknown]
  - Crying [Unknown]
  - Pyrexia [Unknown]

NARRATIVE: CASE EVENT DATE: 202011
